FAERS Safety Report 6199080-5 (Version None)
Quarter: 2009Q2

REPORT INFORMATION
  Report Type: 
  Country: None (occurrence: None)
  Receive Date: 20090522
  Receipt Date: 20090511
  Transmission Date: 20091009
  Serious: Yes (Other)
  Sender: FDA-Public Use
  Company Number: US-WYE-H09311509

PATIENT
  Sex: Female

DRUGS (4)
  1. EFFEXOR XR [Suspect]
     Indication: DEPRESSION
     Route: 048
     Dates: start: 20041001
  2. EFFEXOR XR [Suspect]
     Dosage: ^WEANED HERSELF DOWN^ OVER A PERIOD OF TIME
     Route: 048
  3. EFFEXOR XR [Suspect]
     Route: 048
     Dates: end: 20090327
  4. SYNTHROID [Concomitant]
     Dosage: UNKNOWN

REACTIONS (5)
  - ANXIETY [None]
  - DEPRESSED MOOD [None]
  - DRUG WITHDRAWAL SYNDROME [None]
  - FEAR [None]
  - SUICIDAL IDEATION [None]
